FAERS Safety Report 24616707 (Version 1)
Quarter: 2024Q4

REPORT INFORMATION
  Report Type: Spontaneous
  Country: JP (occurrence: JP)
  Receive Date: 20241114
  Receipt Date: 20241114
  Transmission Date: 20250115
  Serious: Yes (Life-Threatening, Other)
  Sender: AMGEN
  Company Number: JP-KYOWAKIRIN-2024KK025328

PATIENT
  Age: 37 Year
  Sex: Male

DRUGS (3)
  1. DARBEPOETIN ALFA [Suspect]
     Active Substance: DARBEPOETIN ALFA
     Indication: Nephrogenic anaemia
     Dosage: UNK (FROM MARCH 13, YEAR X)
     Route: 065
  2. RITUXIMAB [Concomitant]
     Active Substance: RITUXIMAB
     Indication: Sjogren^s syndrome
     Dosage: UNK
     Route: 065
  3. RITUXIMAB [Concomitant]
     Active Substance: RITUXIMAB
     Indication: Thrombotic microangiopathy

REACTIONS (4)
  - Cardio-respiratory arrest [Unknown]
  - Altered state of consciousness [Unknown]
  - Generalised tonic-clonic seizure [Unknown]
  - Blood pressure decreased [Unknown]
